FAERS Safety Report 7447591-4 (Version None)
Quarter: 2011Q2

REPORT INFORMATION
  Report Type: 
  Country: None (occurrence: None)
  Receive Date: 20110421
  Receipt Date: 20110411
  Transmission Date: 20111010
  Serious: Yes (Hospitalization)
  Sender: FDA-Public Use
  Company Number: 2011SP012509

PATIENT
  Age: 34 Year
  Sex: Female
  Weight: 56 kg

DRUGS (2)
  1. REBETOL [Suspect]
     Indication: HEPATITIS C
     Dosage: 200 MG;BID;PO
     Route: 048
     Dates: start: 20110214, end: 20110226
  2. PEG-INTRON [Suspect]
     Indication: HEPATITIS C
     Dosage: 80 MCG;QW;SC
     Route: 058
     Dates: start: 20110214, end: 20110226

REACTIONS (4)
  - TREMOR [None]
  - DEPRESSIVE SYMPTOM [None]
  - HYPOAESTHESIA [None]
  - IMPAIRED WORK ABILITY [None]
